FAERS Safety Report 4713987-4 (Version None)
Quarter: 2005Q3

REPORT INFORMATION
  Report Type: 
  Country: None (occurrence: None)
  Receive Date: 20050712
  Receipt Date: 20050624
  Transmission Date: 20060218
  Serious: Yes (Other)
  Sender: FDA-Public Use
  Company Number: EWC050644715

PATIENT
  Age: 55 Year
  Sex: Male

DRUGS (4)
  1. GEMCITABINE HYDROCHLORIDE-IV (GEMCITABINE) [Suspect]
     Indication: BLADDER CANCER
     Dosage: 1 G
     Dates: start: 20050413, end: 20050506
  2. TROPISETRON [Concomitant]
  3. CLEMASTINE [Concomitant]
  4. ACETAMINOPHEN [Concomitant]

REACTIONS (1)
  - ANGIONEUROTIC OEDEMA [None]
